FAERS Safety Report 20455771 (Version 1)
Quarter: 2022Q1

REPORT INFORMATION
  Report Type: Spontaneous
  Country: GB (occurrence: GB)
  Receive Date: 20220210
  Receipt Date: 20220210
  Transmission Date: 20220423
  Serious: Yes (Hospitalization)
  Sender: FDA-Public Use
  Company Number: GB-MYLANLABS-2022M1011246

PATIENT
  Age: 77 Year
  Sex: Female

DRUGS (2)
  1. TRANEXAMIC ACID [Suspect]
     Active Substance: TRANEXAMIC ACID
     Indication: Haematuria
     Dosage: 1 GRAM, TID, THREE TIMES PER DAY
     Route: 048
  2. TRANEXAMIC ACID [Suspect]
     Active Substance: TRANEXAMIC ACID
     Indication: Anaemia

REACTIONS (4)
  - Ureteric obstruction [Recovered/Resolved]
  - Thrombosis [Recovered/Resolved]
  - Urinary tract disorder [Recovered/Resolved]
  - Perforation [Recovered/Resolved]
